FAERS Safety Report 5303705-3 (Version None)
Quarter: 2007Q2

REPORT INFORMATION
  Report Type: 
  Country: None (occurrence: None)
  Receive Date: 20070420
  Receipt Date: 20070410
  Transmission Date: 20071010
  Serious: Yes (Hospitalization, Disabling, Other)
  Sender: FDA-Public Use
  Company Number: US-PFIZER INC-2006099114

PATIENT
  Sex: Male

DRUGS (3)
  1. CELEBREX [Suspect]
     Indication: OSTEOARTHRITIS
  2. BEXTRA [Suspect]
     Indication: OSTEOARTHRITIS
     Dates: start: 20040406, end: 20041103
  3. VIOXX [Suspect]
     Dates: start: 20040608, end: 20040921

REACTIONS (6)
  - ANXIETY [None]
  - CARDIAC FAILURE CONGESTIVE [None]
  - DEPRESSION [None]
  - MYOCARDIAL INFARCTION [None]
  - POOR QUALITY SLEEP [None]
  - POST-TRAUMATIC STRESS DISORDER [None]
